FAERS Safety Report 7451146-5 (Version None)
Quarter: 2011Q2

REPORT INFORMATION
  Report Type: 
  Country: None (occurrence: None)
  Receive Date: 20110502
  Receipt Date: 20110420
  Transmission Date: 20111010
  Serious: Yes (Hospitalization)
  Sender: FDA-Public Use
  Company Number: PHHY2010FR69096

PATIENT
  Sex: Female

DRUGS (8)
  1. ARAVA [Suspect]
     Dosage: 20 MG, DAILY
     Route: 048
  2. OROCAL [Suspect]
     Dosage: 1 DF, DAILY
     Route: 048
  3. ZELITREX [Concomitant]
     Indication: HERPES VIRUS INFECTION
     Dosage: 500 MG, BID
     Route: 048
     Dates: start: 20100820, end: 20100827
  4. MABTHERA [Suspect]
     Indication: RHEUMATOID ARTHRITIS
     Dosage: 1000 MG, UNK
     Dates: start: 20100722
  5. CORTANCYL [Suspect]
     Dosage: 5 MG, DAILY
     Route: 048
  6. DAFALGAN [Suspect]
     Indication: RHEUMATOID ARTHRITIS
     Dosage: 1 G, TID
     Route: 048
  7. TAREG [Suspect]
     Dosage: 80 MG, DAILY
     Route: 048
  8. OFLOCET [Concomitant]
     Dosage: 400 MG, BID
     Route: 048
     Dates: start: 20100820, end: 20100923

REACTIONS (5)
  - GINGIVITIS ULCERATIVE [None]
  - JAW DISORDER [None]
  - PERIODONTAL DESTRUCTION [None]
  - GASTROENTERITIS [None]
  - HERPES VIRUS INFECTION [None]
